FAERS Safety Report 10199987 (Version 1)
Quarter: 2014Q2

REPORT INFORMATION
  Report Type: Spontaneous
  Country: US (occurrence: US)
  Receive Date: 20140527
  Receipt Date: 20140527
  Transmission Date: 20141212
  Serious: No
  Sender: FDA-Public Use
  Company Number: US-NOVEN-14US008771

PATIENT
  Age: 6 Year
  Sex: Male

DRUGS (3)
  1. DAYTRANA [Suspect]
     Indication: ATTENTION DEFICIT/HYPERACTIVITY DISORDER
     Dosage: 10 MG, QD
     Route: 062
     Dates: start: 20140121, end: 20140122
  2. RISPERDAL [Concomitant]
     Indication: AFFECTIVE DISORDER
  3. CLONIDINE [Concomitant]
     Indication: INSOMNIA

REACTIONS (6)
  - Bruxism [Recovered/Resolved]
  - Crying [Recovered/Resolved]
  - Screaming [Recovered/Resolved]
  - Incorrect drug administration duration [Recovered/Resolved]
  - Drug withdrawal syndrome [Recovered/Resolved]
  - Aggression [Recovered/Resolved]
